FAERS Safety Report 7585552-5 (Version None)
Quarter: 2011Q2

REPORT INFORMATION
  Report Type: 
  Country: None (occurrence: None)
  Receive Date: 20110628
  Receipt Date: 20110628
  Transmission Date: 20111010
  Serious: No
  Sender: FDA-Public Use
  Company Number: None

PATIENT
  Sex: Female
  Weight: 63.5036 kg

DRUGS (1)
  1. OSTEO BI-FLEX WITH 5 LOXIN [Suspect]
     Indication: ARTHRALGIA
     Dosage: TRIPLE STRENGTH 2 TAB/DAY ORAL
     Route: 048

REACTIONS (2)
  - DIZZINESS [None]
  - FATIGUE [None]
